FAERS Safety Report 5857534-2 (Version None)
Quarter: 2008Q3

REPORT INFORMATION
  Report Type: 
  Country: None (occurrence: None)
  Receive Date: 20080818
  Receipt Date: 20080623
  Transmission Date: 20090109
  Serious: No
  Sender: FDA-Public Use
  Company Number: TPA2008A00969

PATIENT
  Sex: Male

DRUGS (2)
  1. ROZEREM [Suspect]
     Indication: INSOMNIA
     Dosage: 8 MG, QHS, PER ORAL
     Route: 048
     Dates: start: 20071201, end: 20080601
  2. UNKNOWN BLOOD PRESSURE MEDICATION(ANTIHYPERTENSIVES) [Concomitant]

REACTIONS (2)
  - HEADACHE [None]
  - HYPERTENSION [None]
